FAERS Safety Report 13084389 (Version 1)
Quarter: 2017Q1

REPORT INFORMATION
  Report Type: Spontaneous
  Country: US (occurrence: US)
  Receive Date: 20170102
  Receipt Date: 20170102
  Transmission Date: 20170428
  Serious: No
  Sender: FDA-Public Use
  Company Number: None

PATIENT
  Age: 42 Year
  Sex: Male

DRUGS (1)
  1. CLONAZEPAM MYLAN [Suspect]
     Active Substance: CLONAZEPAM
     Route: 048

REACTIONS (3)
  - Product taste abnormal [None]
  - Product quality issue [None]
  - Retching [None]

NARRATIVE: CASE EVENT DATE: 20161217
